FAERS Safety Report 7170541-5 (Version None)
Quarter: 2010Q4

REPORT INFORMATION
  Report Type: 
  Country: None (occurrence: None)
  Receive Date: 20101217
  Receipt Date: 20101209
  Transmission Date: 20110411
  Serious: Yes (Hospitalization)
  Sender: FDA-Public Use
  Company Number: AU-AMGEN-US194710

PATIENT
  Sex: Male

DRUGS (5)
  1. MOTESANIB DIPHOSPHATE [Suspect]
     Indication: METASTATIC NEOPLASM
     Dosage: 125 MG, QD
     Route: 048
     Dates: start: 20060921
  2. PANITUMUMAB [Suspect]
     Indication: METASTATIC NEOPLASM
     Dosage: 630 MG, Q2WK
     Route: 042
     Dates: start: 20060919
  3. IRINOTECAN [Suspect]
     Dosage: UNK UNK, UNK
     Route: 042
  4. FOLINIC ACID [Suspect]
     Dosage: UNK UNK, UNK
     Route: 042
  5. FLUOROURACIL [Suspect]
     Dosage: UNK UNK, UNK
     Route: 042

REACTIONS (3)
  - BACK PAIN [None]
  - CLOSTRIDIAL INFECTION [None]
  - PYREXIA [None]
